FAERS Safety Report 21246132 (Version 1)
Quarter: 2022Q3

REPORT INFORMATION
  Report Type: Spontaneous
  Country: DE (occurrence: None)
  Receive Date: 20220824
  Receipt Date: 20220824
  Transmission Date: 20221027
  Serious: Yes (Other)
  Sender: FDA-Public Use
  Company Number: DE-ROCHE-3165406

PATIENT
  Age: 62 Year
  Sex: Male

DRUGS (1)
  1. TECENTRIQ [Suspect]
     Active Substance: ATEZOLIZUMAB
     Indication: Lung neoplasm malignant
     Dosage: THREE CYCLES OF TECENTRIQ IN COMBINATION WITH CHEMOTHERAPY (NOS)
     Route: 065

REACTIONS (3)
  - Lung neoplasm malignant [Unknown]
  - Pulmonary pain [Unknown]
  - Metastasis [Unknown]
